FAERS Safety Report 5724847-4 (Version None)
Quarter: 2008Q2

REPORT INFORMATION
  Report Type: 
  Country: None (occurrence: None)
  Receive Date: 20080501
  Receipt Date: 20080417
  Transmission Date: 20081010
  Serious: Yes (Hospitalization, Other)
  Sender: FDA-Public Use
  Company Number: CA-BAYER-200711965GDS

PATIENT
  Age: 63 Year

DRUGS (1)
  1. ASPIRIN [Suspect]
     Indication: HEADACHE
     Dosage: TOTAL DAILY DOSE: 2250 MG  UNIT DOSE: 500 MG
     Route: 048
     Dates: start: 20051018, end: 20051019

REACTIONS (3)
  - ANALGESIC DRUG LEVEL INCREASED [None]
  - MEDICATION ERROR [None]
  - TINNITUS [None]
